FAERS Safety Report 6312764-0 (Version None)
Quarter: 2009Q3

REPORT INFORMATION
  Report Type: 
  Country: None (occurrence: None)
  Receive Date: 20090818
  Receipt Date: 20090807
  Transmission Date: 20100115
  Serious: Yes (Other)
  Sender: FDA-Public Use
  Company Number: US-JNJFOC-20090803376

PATIENT
  Age: 35 Year
  Sex: Female

DRUGS (4)
  1. PREZISTA [Suspect]
     Indication: HIV INFECTION
     Route: 048
  2. INTELENCE [Suspect]
     Indication: HIV INFECTION
     Route: 048
  3. RITONAVIR [Concomitant]
     Indication: HIV INFECTION
  4. ISENTRESS [Concomitant]
     Indication: HIV INFECTION

REACTIONS (1)
  - BLOOD CREATINE PHOSPHOKINASE INCREASED [None]
